FAERS Safety Report 8916018 (Version 4)
Quarter: 2013Q1

REPORT INFORMATION
  Report Type: Report from Study
  Country: DE (occurrence: DE)
  Receive Date: 20121119
  Receipt Date: 20130103
  Transmission Date: 20140127
  Serious: Yes (Hospitalization)
  Sender: FDA-Public Use
  Company Number: DE-GLAXOSMITHKLINE-B0845854A

PATIENT
  Sex: Male

DRUGS (5)
  1. PAZOPANIB [Suspect]
     Indication: GASTRIC CANCER
     Dosage: 400MG PER DAY
     Route: 048
     Dates: start: 20120328
  2. LEUCOVORIN [Suspect]
     Indication: GASTRIC CANCER
     Dosage: 376MG PER DAY
     Dates: start: 20121031
  3. OXALIPLATIN [Suspect]
     Indication: GASTRIC CANCER
     Dosage: 148.5MG PER DAY
     Dates: start: 20121031
  4. 5-FU [Suspect]
     Indication: GASTRIC CANCER
     Dosage: 5148MG PER DAY
     Dates: start: 20121031
  5. RANITIDIN [Suspect]
     Indication: PREMEDICATION
     Dosage: 10MG PER DAY
     Dates: start: 20120328

REACTIONS (1)
  - Anaphylactic reaction [Recovered/Resolved]
